FAERS Safety Report 24812836 (Version 1)
Quarter: 2025Q1

REPORT INFORMATION
  Report Type: Spontaneous
  Country: US (occurrence: US)
  Receive Date: 20250107
  Receipt Date: 20250107
  Transmission Date: 20250408
  Serious: No
  Sender: CHATTEM
  Company Number: US-OPELLA-2024OHG042369

PATIENT

DRUGS (4)
  1. ALLEGRA [Suspect]
     Active Substance: FEXOFENADINE HYDROCHLORIDE
     Indication: Idiopathic urticaria
     Route: 065
  2. ZYRTEC [Suspect]
     Active Substance: CETIRIZINE HYDROCHLORIDE
     Indication: Idiopathic urticaria
     Route: 065
  3. CROMOLYN [Suspect]
     Active Substance: CROMOLYN
     Indication: Idiopathic urticaria
     Route: 065
  4. MONTELUKAST [Suspect]
     Active Substance: MONTELUKAST
     Indication: Idiopathic urticaria
     Route: 065

REACTIONS (5)
  - Fatigue [Unknown]
  - Anxiety [Unknown]
  - Insomnia [Unknown]
  - Therapeutic response shortened [Unknown]
  - C-reactive protein increased [Unknown]
